FAERS Safety Report 7854735-9 (Version None)
Quarter: 2011Q4

REPORT INFORMATION
  Report Type: 
  Country: None (occurrence: None)
  Receive Date: 20111026
  Receipt Date: 20110809
  Transmission Date: 20120403
  Serious: No
  Sender: FDA-Public Use
  Company Number: US-MUTUAL PHARMACEUTICAL COMPANY, INC.-CLCY20110102

PATIENT
  Sex: Male
  Weight: 88.53 kg

DRUGS (5)
  1. DILTIAZEM HCL [Concomitant]
     Indication: HYPERTENSION
     Route: 048
  2. CRESTOR [Concomitant]
     Indication: BLOOD CHOLESTEROL INCREASED
     Route: 048
  3. COLCRYS [Suspect]
     Indication: GOUT
     Route: 048
     Dates: start: 20110601
  4. ASPIRIN [Concomitant]
     Indication: PERIPHERAL VASCULAR DISORDER
     Route: 048
  5. PLAVIX [Concomitant]
     Indication: PERIPHERAL VASCULAR DISORDER
     Route: 048

REACTIONS (1)
  - DRUG INEFFECTIVE [None]
